FAERS Safety Report 16316976 (Version 1)
Quarter: 2019Q2

REPORT INFORMATION
  Report Type: Spontaneous
  Country: US (occurrence: US)
  Receive Date: 20190515
  Receipt Date: 20190515
  Transmission Date: 20190711
  Serious: No
  Sender: FDA-Public Use
  Company Number: US-SA-2019SA125379

PATIENT

DRUGS (1)
  1. GLIBENCLAMIDE [Suspect]
     Active Substance: GLYBURIDE
     Dosage: 5 MG

REACTIONS (5)
  - Blood pressure increased [Unknown]
  - Asthenia [Unknown]
  - Hyperhidrosis [Unknown]
  - Tremor [Unknown]
  - Weight increased [Unknown]
